FAERS Safety Report 15210289 (Version 1)
Quarter: 2018Q3

REPORT INFORMATION
  Report Type: Spontaneous
  Country: US (occurrence: US)
  Receive Date: 20180727
  Receipt Date: 20180727
  Transmission Date: 20181010
  Serious: Yes (Life-Threatening, Hospitalization)
  Sender: FDA-Public Use
  Company Number: PHHY2018US052777

PATIENT
  Age: 65 Year
  Sex: Male

DRUGS (5)
  1. RIFAMPIN. [Suspect]
     Active Substance: RIFAMPIN
     Indication: TUBERCULOSIS OF EYE
     Route: 065
  2. PYRAZINAMIDE. [Concomitant]
     Active Substance: PYRAZINAMIDE
     Indication: TUBERCULOSIS OF EYE
     Route: 065
  3. ETHAMBUTOL [Concomitant]
     Active Substance: ETHAMBUTOL HYDROCHLORIDE
     Indication: TUBERCULOSIS OF EYE
     Route: 065
  4. PYRIDOXINE [Suspect]
     Active Substance: PYRIDOXINE
     Indication: TUBERCULOSIS OF EYE
     Route: 065
  5. ISONIAZID. [Suspect]
     Active Substance: ISONIAZID
     Indication: TUBERCULOSIS OF EYE
     Route: 065

REACTIONS (6)
  - Weight decreased [Recovering/Resolving]
  - Nausea [Recovering/Resolving]
  - Polydipsia [Recovering/Resolving]
  - Vomiting [Recovering/Resolving]
  - Diabetic ketoacidosis [Recovering/Resolving]
  - Polyuria [Recovering/Resolving]
